FAERS Safety Report 5468561-1 (Version None)
Quarter: 2007Q3

REPORT INFORMATION
  Report Type: 
  Country: None (occurrence: None)
  Receive Date: 20070926
  Receipt Date: 20070917
  Transmission Date: 20080115
  Serious: Yes (Hospitalization, Other)
  Sender: FDA-Public Use
  Company Number: HQWYE127319JUL07

PATIENT
  Sex: Male
  Weight: 15.6 kg

DRUGS (1)
  1. BENEFIX [Suspect]
     Indication: FACTOR IX DEFICIENCY
     Dosage: 50 IU/KG
     Route: 042
     Dates: end: 20070704

REACTIONS (1)
  - FACTOR IX INHIBITION [None]
